FAERS Safety Report 21461335 (Version 1)
Quarter: 2022Q4

REPORT INFORMATION
  Report Type: Report from Study
  Country: US (occurrence: US)
  Receive Date: 20221015
  Receipt Date: 20221015
  Transmission Date: 20230113
  Serious: No
  Sender: FDA-Public Use
  Company Number: US-ABBVIE-4132031

PATIENT
  Sex: Male

DRUGS (1)
  1. VENCLEXTA [Suspect]
     Active Substance: VENETOCLAX
     Indication: Mantle cell lymphoma
     Dosage: TAKE 2 TABLETS BY MOUTH DAILY FOR WEEK 3, THEN 4 TABLETS BY MOUTH DAILY WEEK 4 AND THEREAFTER (WI...
     Route: 048

REACTIONS (2)
  - Diarrhoea [Unknown]
  - Blood bilirubin increased [Unknown]
